FAERS Safety Report 6386062-3 (Version None)
Quarter: 2009Q4

REPORT INFORMATION
  Report Type: 
  Country: None (occurrence: None)
  Receive Date: 20091002
  Receipt Date: 20090605
  Transmission Date: 20100525
  Serious: No
  Sender: FDA-Public Use
  Company Number: US-ASTRAZENECA-2008UW24278

PATIENT
  Age: 54 Year
  Sex: Female

DRUGS (2)
  1. ARIMIDEX [Suspect]
     Indication: BREAST CANCER
     Route: 048
     Dates: start: 20060501
  2. LISINOPRIL [Concomitant]
     Route: 048

REACTIONS (7)
  - ARTHRALGIA [None]
  - HOT FLUSH [None]
  - HYPERTENSION [None]
  - INFLUENZA LIKE ILLNESS [None]
  - MUSCLE SPASMS [None]
  - PAIN [None]
  - WEIGHT INCREASED [None]
